FAERS Safety Report 26070102 (Version 1)
Quarter: 2025Q4

REPORT INFORMATION
  Report Type: Spontaneous
  Country: US (occurrence: None)
  Receive Date: 20251119
  Receipt Date: 20251119
  Transmission Date: 20260117
  Serious: No
  Sender: FDA-CTU
  Company Number: None

PATIENT
  Age: 84 Year
  Sex: Male
  Weight: 76.66 kg

DRUGS (1)
  1. LENVIMA [Suspect]
     Active Substance: LENVATINIB
     Indication: Renal cancer
     Dosage: 4 MG DAILY ORAL
     Route: 048
     Dates: start: 20251117

REACTIONS (2)
  - Blood pressure systolic increased [None]
  - Blood pressure diastolic decreased [None]

NARRATIVE: CASE EVENT DATE: 20251119
